FAERS Safety Report 8089182-0 (Version None)
Quarter: 2012Q1

REPORT INFORMATION
  Report Type: 
  Country: None (occurrence: None)
  Receive Date: 20120128
  Receipt Date: 20110621
  Transmission Date: 20120608
  Serious: No
  Sender: FDA-Public Use
  Company Number: US-ABBOTT-11P-163-0732101-00

PATIENT
  Age: 62 Year
  Sex: Female

DRUGS (7)
  1. ASACOL [Concomitant]
     Indication: CROHN'S DISEASE
     Dosage: 400 MG - DAILY
  2. SINGULAIR [Concomitant]
     Indication: URTICARIA
     Dosage: 10 MG - DAILY
  3. RANITIDINE [Concomitant]
     Indication: URTICARIA
     Dosage: 150 MG - BID
  4. PREDNISONE TAB [Concomitant]
     Indication: URTICARIA
     Dosage: 2 MG - DAILY
  5. HUMIRA [Suspect]
     Indication: RHEUMATOID ARTHRITIS
     Dates: start: 20100701
  6. ACYCLOVIR [Concomitant]
     Indication: URTICARIA
     Dosage: 400 MG - TID
  7. UNKNOWN ALLERGY MEDICATION [Concomitant]
     Indication: URTICARIA
     Dosage: DAILY

REACTIONS (5)
  - DEVICE MALFUNCTION [None]
  - INCORRECT DOSE ADMINISTERED [None]
  - URTICARIA [None]
  - NEEDLE ISSUE [None]
  - INJECTION SITE PAIN [None]
